FAERS Safety Report 13700688 (Version 1)
Quarter: 2017Q2

REPORT INFORMATION
  Report Type: Spontaneous
  Country: NL (occurrence: NL)
  Receive Date: 20170629
  Receipt Date: 20170629
  Transmission Date: 20170830
  Serious: Yes (Congenital Anomaly, Other)
  Sender: FDA-Public Use
  Company Number: NL-APOTEX-2017AP013466

PATIENT

DRUGS (1)
  1. VALPROIC ACID. [Suspect]
     Active Substance: VALPROIC ACID
     Indication: PRODUCT USED FOR UNKNOWN INDICATION
     Dosage: UNK UNK,
     Route: 064

REACTIONS (19)
  - Lip disorder [Unknown]
  - Nipple disorder [Unknown]
  - Tremor [Unknown]
  - Plagiocephaly [Unknown]
  - High arched palate [Unknown]
  - Cryptorchism [Unknown]
  - Ear disorder [Unknown]
  - Bradycardia [Unknown]
  - Hypospadias [Unknown]
  - Withdrawal syndrome [Unknown]
  - Syndactyly [Unknown]
  - Premature closure of cranial sutures [Unknown]
  - Prominent epicanthal folds [Unknown]
  - Hypoglycaemia [Unknown]
  - Feeding disorder [Unknown]
  - Apnoea [Unknown]
  - Drug level increased [Unknown]
  - Foetal exposure during pregnancy [Unknown]
  - Oxygen saturation decreased [Unknown]
